FAERS Safety Report 4978938-6 (Version None)
Quarter: 2006Q2

REPORT INFORMATION
  Report Type: 
  Country: None (occurrence: None)
  Receive Date: 20060419
  Receipt Date: 20060419
  Transmission Date: 20061013
  Serious: Yes (Other)
  Sender: FDA-Public Use
  Company Number: None

PATIENT
  Age: 60 Year
  Sex: Female
  Weight: 74.8435 kg

DRUGS (1)
  1. LEVAQUIN [Suspect]

REACTIONS (8)
  - DEAFNESS [None]
  - DEPRESSION [None]
  - INSOMNIA [None]
  - PAIN [None]
  - PSYCHOTIC DISORDER [None]
  - TENDON DISORDER [None]
  - TINNITUS [None]
  - UNEVALUABLE EVENT [None]
